APPROVED DRUG PRODUCT: ALFENTA
Active Ingredient: ALFENTANIL HYDROCHLORIDE
Strength: EQ 0.5MG BASE/ML
Dosage Form/Route: INJECTABLE;INJECTION
Application: N019353 | Product #001
Applicant: RISING PHARMA HOLDINGS INC
Approved: Dec 29, 1986 | RLD: Yes | RS: Yes | Type: RX